APPROVED DRUG PRODUCT: LILETTA
Active Ingredient: LEVONORGESTREL
Strength: 52MG
Dosage Form/Route: SYSTEM;INTRAUTERINE
Application: N206229 | Product #001
Applicant: MEDICINES360
Approved: Feb 26, 2015 | RLD: Yes | RS: Yes | Type: RX

PATENTS:
Patent 10028858 | Expires: Mar 22, 2034
Patent 11090186 | Expires: Oct 24, 2033
Patent 12004992 | Expires: Oct 6, 2033
Patent 11571328 | Expires: Sep 7, 2040

EXCLUSIVITY:
Code: I-917 | Date: Jun 29, 2026